FAERS Safety Report 18975938 (Version 1)
Quarter: 2021Q1

REPORT INFORMATION
  Report Type: Spontaneous
  Country: US (occurrence: US)
  Receive Date: 20210305
  Receipt Date: 20210305
  Transmission Date: 20210420
  Serious: No
  Sender: FDA-Public Use
  Company Number: US-TEVA-2021-US-1878588

PATIENT
  Age: 78 Year
  Sex: Female

DRUGS (3)
  1. AJOVY [Suspect]
     Active Substance: FREMANEZUMAB-VFRM
     Indication: POST CONCUSSION SYNDROME
     Route: 065
     Dates: start: 20210204
  2. LISINOPRIL. [Concomitant]
     Active Substance: LISINOPRIL
     Indication: HYPERTENSION
     Dosage: 40 MG
     Route: 065
  3. AJOVY [Suspect]
     Active Substance: FREMANEZUMAB-VFRM

REACTIONS (4)
  - Crying [Unknown]
  - Product use in unapproved indication [Unknown]
  - Depressed mood [Unknown]
  - Confusional state [Unknown]

NARRATIVE: CASE EVENT DATE: 20210204
